FAERS Safety Report 9480416 (Version 2)
Quarter: 2013Q3

REPORT INFORMATION
  Report Type: Spontaneous
  Country: US (occurrence: US)
  Receive Date: 20130828
  Receipt Date: 20130828
  Transmission Date: 20140515
  Serious: Yes (Hospitalization, Other)
  Sender: FDA-Public Use
  Company Number: US-AMGEN-KDL063622

PATIENT
  Age: 56 Year
  Sex: Female

DRUGS (2)
  1. ENBREL [Suspect]
     Indication: RHEUMATOID ARTHRITIS
     Dosage: 25 MG, 2 TIMES/WK
     Route: 058
     Dates: start: 20030301, end: 20031201
  2. METHOTREXATE [Concomitant]
     Dosage: UNK UNK, QWK
     Route: 048

REACTIONS (3)
  - Large intestine perforation [Unknown]
  - Diverticulitis [Unknown]
  - Small intestinal perforation [Unknown]
